FAERS Safety Report 13265748 (Version 1)
Quarter: 2017Q1

REPORT INFORMATION
  Report Type: Report from Study
  Country: BR (occurrence: BR)
  Receive Date: 20170223
  Receipt Date: 20170223
  Transmission Date: 20170428
  Serious: Yes (Hospitalization)
  Sender: FDA-Public Use
  Company Number: PHHY2017BR016846

PATIENT
  Age: 46 Year
  Sex: Female
  Weight: 79 kg

DRUGS (1)
  1. ACLASTA [Suspect]
     Active Substance: ZOLEDRONIC ACID
     Indication: OSTEITIS DEFORMANS
     Dosage: 5 MG, Q12MO
     Route: 042
     Dates: start: 20170125

REACTIONS (15)
  - Hypocalcaemia [Not Recovered/Not Resolved]
  - Pain in jaw [Recovering/Resolving]
  - Ear pain [Recovering/Resolving]
  - Swelling [Not Recovered/Not Resolved]
  - Blood potassium decreased [Recovered/Resolved]
  - Toothache [Recovering/Resolving]
  - Hypoaesthesia [Unknown]
  - Blood sodium decreased [Recovered/Resolved]
  - Pain [Recovering/Resolving]
  - Eye irritation [Unknown]
  - Extremity contracture [Unknown]
  - Feeling hot [Unknown]
  - Headache [Recovering/Resolving]
  - Blood magnesium decreased [Recovered/Resolved]
  - Dry skin [Unknown]

NARRATIVE: CASE EVENT DATE: 20170125
